FAERS Safety Report 10880239 (Version 2)
Quarter: 2015Q1

REPORT INFORMATION
  Report Type: Spontaneous
  Country: US (occurrence: US)
  Receive Date: 20150302
  Receipt Date: 20150309
  Transmission Date: 20150721
  Serious: Yes (Other)
  Sender: FDA-Public Use
  Company Number: US-PFIZER INC-2015071794

PATIENT
  Age: 56 Year
  Sex: Male

DRUGS (1)
  1. SUTENT [Suspect]
     Active Substance: SUNITINIB MALATE
     Indication: MALIGNANT GENITOURINARY TRACT NEOPLASM
     Dosage: 37.5 MG, DAILY
     Route: 048
     Dates: start: 20141231

REACTIONS (7)
  - Disease progression [Unknown]
  - Abdominal discomfort [Not Recovered/Not Resolved]
  - Pain in extremity [Unknown]
  - Diarrhoea [Unknown]
  - Pain in extremity [Not Recovered/Not Resolved]
  - Blister [Recovering/Resolving]
  - Malignant genitourinary tract neoplasm [Unknown]

NARRATIVE: CASE EVENT DATE: 20150220
